FAERS Safety Report 9578258 (Version 1)
Quarter: 2013Q4

REPORT INFORMATION
  Report Type: Spontaneous
  Country: US (occurrence: US)
  Receive Date: 20131001
  Receipt Date: 20131001
  Transmission Date: 20140711
  Serious: No
  Sender: FDA-Public Use
  Company Number: US-AMGEN-USASP2013011932

PATIENT
  Sex: Female
  Weight: 81 kg

DRUGS (8)
  1. ENBREL [Suspect]
     Indication: RHEUMATOID ARTHRITIS
     Dosage: 50 MG, QWK
     Route: 058
  2. NAPROXEN [Concomitant]
     Dosage: 375 MG, UNK
  3. METHOTREXATE [Concomitant]
     Dosage: UNK
  4. PLAQUENIL                          /00072602/ [Concomitant]
     Dosage: 200 MG, UNK
  5. FOLIC ACID [Concomitant]
     Dosage: 1 MG, UNK
  6. CLONIDINE [Concomitant]
     Dosage: 0.1 MG, UNK
  7. ATENOLOL [Concomitant]
     Dosage: 25 MG, UNK
  8. SYNTHROID [Concomitant]
     Dosage: 25 MCG

REACTIONS (1)
  - Tooth infection [Unknown]
